FAERS Safety Report 10205952 (Version 3)
Quarter: 2014Q4

REPORT INFORMATION
  Report Type: Spontaneous
  Country: JP (occurrence: JP)
  Receive Date: 20140530
  Receipt Date: 20141130
  Transmission Date: 20150528
  Serious: Yes (Hospitalization, Other)
  Sender: FDA-Public Use
  Company Number: JP-BRISTOL-MYERS SQUIBB COMPANY-20857850

PATIENT
  Age: 62 Year
  Sex: Female
  Weight: 50 kg

DRUGS (14)
  1. MECOBALAMIN [Concomitant]
     Active Substance: METHYLCOBALAMIN
  2. SELBEX [Concomitant]
     Active Substance: TEPRENONE
  3. ADETPHOS [Concomitant]
     Active Substance: ADENOSINE TRIPHOSPHATE
  4. GLUCOBAY [Suspect]
     Active Substance: ACARBOSE
     Indication: TYPE 2 DIABETES MELLITUS
     Route: 048
     Dates: start: 20140205, end: 20140330
  5. GASMOTIN [Concomitant]
     Active Substance: MOSAPRIDE CITRATE
  6. ALLEGRA [Concomitant]
     Active Substance: FEXOFENADINE HYDROCHLORIDE
  7. OMNIPAQUE [Suspect]
     Active Substance: IOHEXOL
     Indication: INVESTIGATION
     Route: 041
     Dates: start: 20140330
  8. CALCIUM CARBONATE. [Concomitant]
     Active Substance: CALCIUM CARBONATE
  9. ZYLORIC [Concomitant]
     Active Substance: ALLOPURINOL
  10. CINACALCET HCL [Concomitant]
     Active Substance: CINACALCET HYDROCHLORIDE
  11. ANPLAG [Concomitant]
     Active Substance: SARPOGRELATE
  12. FOSRENOL [Concomitant]
     Active Substance: LANTHANUM CARBONATE
  13. ONGLYZA [Suspect]
     Active Substance: SAXAGLIPTIN HYDROCHLORIDE
     Indication: TYPE 2 DIABETES MELLITUS
     Route: 048
     Dates: start: 20140307, end: 20140330
  14. TAKEPRON [Concomitant]
     Active Substance: LANSOPRAZOLE

REACTIONS (1)
  - Stevens-Johnson syndrome [Recovered/Resolved]

NARRATIVE: CASE EVENT DATE: 20140330
